FAERS Safety Report 16383987 (Version 1)
Quarter: 2019Q2

REPORT INFORMATION
  Report Type: Spontaneous
  Country: ME (occurrence: ME)
  Receive Date: 20190603
  Receipt Date: 20190603
  Transmission Date: 20190711
  Serious: Yes (Other)
  Sender: FDA-Public Use
  Company Number: ME-AMNEAL PHARMACEUTICALS-2019AMN00648

PATIENT
  Age: 56 Year
  Sex: Female

DRUGS (1)
  1. DICLOFENAC SODIUM. [Suspect]
     Active Substance: DICLOFENAC SODIUM
     Indication: BACK PAIN
     Dosage: 200 MG, 1X/DAY

REACTIONS (1)
  - Gastrointestinal disorder [Unknown]
